FAERS Safety Report 7273197-6 (Version None)
Quarter: 2011Q1

REPORT INFORMATION
  Report Type: 
  Country: None (occurrence: None)
  Receive Date: 20110203
  Receipt Date: 20110125
  Transmission Date: 20110831
  Serious: Yes (Life-Threatening)
  Sender: FDA-Public Use
  Company Number: US-JNJFOC-20100805039

PATIENT
  Sex: Male

DRUGS (1)
  1. REMICADE [Suspect]
     Indication: CROHN'S DISEASE
     Route: 042

REACTIONS (6)
  - INFUSION RELATED REACTION [None]
  - CHILLS [None]
  - MUSCLE SPASMS [None]
  - PYREXIA [None]
  - BACK PAIN [None]
  - TACHYCARDIA [None]
